FAERS Safety Report 6406422-1 (Version None)
Quarter: 2009Q4

REPORT INFORMATION
  Report Type: 
  Country: None (occurrence: None)
  Receive Date: 20091014
  Receipt Date: 20091005
  Transmission Date: 20100525
  Serious: Yes (Hospitalization)
  Sender: FDA-Public Use
  Company Number: 230444J09USA

PATIENT
  Age: 36 Year
  Sex: Female

DRUGS (6)
  1. REBIF [Suspect]
     Indication: MULTIPLE SCLEROSIS
     Dosage: 8.8 MCG, 3 IN 1 WEEKS, SUBCUTANEOUS ; 22 MCG, 3 IN 1 WEEKS, SUBCUTANEOUS
     Route: 058
     Dates: start: 20090901, end: 20090901
  2. REBIF [Suspect]
     Indication: MULTIPLE SCLEROSIS
     Dosage: 8.8 MCG, 3 IN 1 WEEKS, SUBCUTANEOUS ; 22 MCG, 3 IN 1 WEEKS, SUBCUTANEOUS
     Route: 058
     Dates: start: 20090901, end: 20090914
  3. ADVAIR HFA [Concomitant]
  4. LEXAPRO [Concomitant]
  5. DEPAKOTE [Concomitant]
  6. CLONIDINE [Concomitant]

REACTIONS (4)
  - CONDITION AGGRAVATED [None]
  - FEELING HOT [None]
  - MULTIPLE SCLEROSIS [None]
  - MUSCULOSKELETAL DISCOMFORT [None]
